FAERS Safety Report 4904662-1 (Version None)
Quarter: 2006Q1

REPORT INFORMATION
  Report Type: 
  Country: None (occurrence: None)
  Receive Date: 20060208
  Receipt Date: 20050922
  Transmission Date: 20060701
  Serious: No
  Sender: FDA-Public Use
  Company Number: US-GLAXOSMITHKLINE-A0575433A

PATIENT
  Age: 74 Year
  Sex: Female

DRUGS (4)
  1. PAXIL [Suspect]
     Indication: DEPRESSION
     Route: 048
     Dates: start: 19950101, end: 19960101
  2. MIRAPEX [Concomitant]
  3. SYNTHROID [Concomitant]
  4. SINEMET [Concomitant]

REACTIONS (3)
  - AGITATION [None]
  - DEPRESSION [None]
  - DRUG WITHDRAWAL SYNDROME [None]
